FAERS Safety Report 19451928 (Version 2)
Quarter: 2021Q3

REPORT INFORMATION
  Report Type: Report from Study
  Country: NL (occurrence: NL)
  Receive Date: 20210623
  Receipt Date: 20210928
  Transmission Date: 20211014
  Serious: Yes (Death, Other)
  Sender: FDA-Public Use
  Company Number: NL-AMGEN-NLDSL2020081837

PATIENT
  Age: 59 Year
  Sex: Female

DRUGS (9)
  1. METOCLOPRAMIDE. [Concomitant]
     Active Substance: METOCLOPRAMIDE
     Dosage: 10MG, 1?3D1T
  2. LIDOCAINE. [Concomitant]
     Active Substance: LIDOCAINE
     Dosage: UNK (10MG/ML (HCL?1W) AMP 10ML)
  3. ROCURONIUM [Concomitant]
     Active Substance: ROCURONIUM BROMIDE
     Dosage: UNK (10MG/ML FL 5ML)
  4. THIOPENTAL [Concomitant]
     Active Substance: THIOPENTAL
     Dosage: 500 MILLIGRAM
  5. CALCIUM CARBONATE;COLECALCIFEROL [Concomitant]
     Active Substance: CALCIUM CARBONATE\CHOLECALCIFEROL
     Dosage: 1.25G/880IE (500MG CA), 1D1S
  6. PANTOPRAZOL [PANTOPRAZOLE] [Concomitant]
     Active Substance: PANTOPRAZOLE
     Dosage: 20 MILLIGRAM, QD
  7. SODIUM CHLORIDE. [Concomitant]
     Active Substance: SODIUM CHLORIDE
     Dosage: 9MG/ML(0.9%) AMP 10ML
  8. XGEVA [Suspect]
     Active Substance: DENOSUMAB
     Indication: PROPHYLAXIS
     Dosage: 120 MILLIGRAM, Q4WK
     Route: 058
     Dates: start: 20190813
  9. SUCRALFATE. [Concomitant]
     Active Substance: SUCRALFATE
     Dosage: UNK (1G, 1?4D1S)

REACTIONS (2)
  - Death [Fatal]
  - Breast cancer metastatic [Not Recovered/Not Resolved]

NARRATIVE: CASE EVENT DATE: 20210914
